FAERS Safety Report 18383882 (Version 1)
Quarter: 2020Q4

REPORT INFORMATION
  Report Type: Spontaneous
  Country: FR (occurrence: FR)
  Receive Date: 20201014
  Receipt Date: 20201014
  Transmission Date: 20210114
  Serious: Yes (Hospitalization)
  Sender: FDA-Public Use
  Company Number: FR-MYLANLABS-2020M1086122

PATIENT
  Age: 52 Year
  Sex: Female
  Weight: 77 kg

DRUGS (6)
  1. ZOPHREN                            /00955301/ [Suspect]
     Active Substance: ONDANSETRON
     Indication: PROPHYLAXIS OF NAUSEA AND VOMITING
     Dosage: 16 MILLIGRAM, QD
     Route: 042
     Dates: start: 20200121, end: 20200121
  2. AMIKACIN. [Suspect]
     Active Substance: AMIKACIN
     Indication: SEPSIS
     Dosage: 2 GRAM, TOTAL
     Route: 042
     Dates: start: 20200121, end: 20200121
  3. MELPHALAN. [Suspect]
     Active Substance: MELPHALAN
     Indication: PLASMA CELL MYELOMA
     Dosage: 200 MILLIGRAM/SQ. METER, CYCLE
     Route: 042
     Dates: start: 20200121, end: 20200121
  4. ALLOPURINOL. [Suspect]
     Active Substance: ALLOPURINOL
     Indication: PLASMA CELL MYELOMA
     Dosage: 300 MILLIGRAM, QD
     Route: 048
     Dates: start: 20200120, end: 20200121
  5. EMEND [Suspect]
     Active Substance: APREPITANT
     Indication: PROPHYLAXIS OF NAUSEA AND VOMITING
     Dosage: 1 DOSAGE FORM, TOTAL
     Route: 048
     Dates: start: 20200121, end: 20200121
  6. CEFTRIAXONE. [Suspect]
     Active Substance: CEFTRIAXONE
     Indication: SEPSIS
     Dosage: 2 GRAM
     Route: 042
     Dates: start: 20200121, end: 20200121

REACTIONS (1)
  - Dermatitis exfoliative generalised [Recovered/Resolved]

NARRATIVE: CASE EVENT DATE: 20200121
